FAERS Safety Report 13269834 (Version 1)
Quarter: 2017Q1

REPORT INFORMATION
  Report Type: Spontaneous
  Country: MX (occurrence: MX)
  Receive Date: 20170224
  Receipt Date: 20170224
  Transmission Date: 20170428
  Serious: Yes (Other)
  Sender: FDA-Public Use
  Company Number: MX-PFIZER INC-2017079760

PATIENT
  Age: 2 Year
  Sex: Female

DRUGS (4)
  1. METHOTREXATE SODIUM. [Suspect]
     Active Substance: METHOTREXATE SODIUM
     Indication: MEDULLOBLASTOMA
     Dosage: UNK
  2. PROCARBAZINE [Concomitant]
     Active Substance: PROCARBAZINE
     Indication: MEDULLOBLASTOMA
     Dosage: UNK
  3. LOMUSTINE. [Concomitant]
     Active Substance: LOMUSTINE
     Indication: MEDULLOBLASTOMA
     Dosage: UNK
  4. VINCRISTINE SULFATE. [Concomitant]
     Active Substance: VINCRISTINE SULFATE
     Indication: MEDULLOBLASTOMA
     Dosage: UNK

REACTIONS (5)
  - Cerebral calcification [Unknown]
  - Cerebral ventricle dilatation [Unknown]
  - Leukoencephalopathy [Unknown]
  - Cerebral atrophy [Unknown]
  - Cerebellar atrophy [Unknown]
